FAERS Safety Report 7540859-2 (Version None)
Quarter: 2011Q2

REPORT INFORMATION
  Report Type: 
  Country: None (occurrence: None)
  Receive Date: 20110603
  Receipt Date: 20110505
  Transmission Date: 20111010
  Serious: No
  Sender: FDA-Public Use
  Company Number: SEP-2011-00004

PATIENT
  Age: 69 Year
  Sex: Male

DRUGS (1)
  1. PLENAXIS [Suspect]
     Indication: PROSTATE CANCER
     Dosage: (1 IN 4 WEEKS)
     Route: 030
     Dates: start: 20100712, end: 20110328

REACTIONS (2)
  - PURULENCE [None]
  - HYPERSENSITIVITY [None]
